FAERS Safety Report 9850564 (Version 1)
Quarter: 2013Q4

REPORT INFORMATION
  Report Type: Spontaneous
  Country: US (occurrence: None)
  Receive Date: 20131226
  Receipt Date: 20131226
  Transmission Date: 20140711
  Serious: Yes (Hospitalization, Other)
  Sender: FDA-Public Use
  Company Number: PHEH2012US010211

PATIENT
  Sex: Male

DRUGS (2)
  1. AFINITOR (RAD) UNKNOWN [Suspect]
     Indication: PANCREATIC NEUROENDOCRINE TUMOUR
     Route: 048
  2. SANDOSTATIN LAR [Suspect]

REACTIONS (3)
  - Renal failure [None]
  - Diabetes mellitus [None]
  - Blood calcium increased [None]
